FAERS Safety Report 16940047 (Version 1)
Quarter: 2019Q4

REPORT INFORMATION
  Report Type: Spontaneous
  Country: BB (occurrence: BB)
  Receive Date: 20191021
  Receipt Date: 20191021
  Transmission Date: 20200122
  Serious: Yes (Other)
  Sender: FDA-Public Use
  Company Number: NVSC2019BB010310

PATIENT
  Sex: Female

DRUGS (1)
  1. LECTRUM 3,75 [Suspect]
     Active Substance: LEUPROLIDE ACETATE
     Indication: ENDOMETRIOSIS
     Dosage: UNK, QMO
     Route: 065

REACTIONS (2)
  - Metrorrhagia [Unknown]
  - Drug ineffective [Unknown]
